FAERS Safety Report 8508399-1 (Version None)
Quarter: 2012Q3

REPORT INFORMATION
  Report Type: 
  Country: None (occurrence: None)
  Receive Date: 20120713
  Receipt Date: 20120710
  Transmission Date: 20120928
  Serious: Yes (Death, Hospitalization)
  Sender: FDA-Public Use
  Company Number: PHHO2012PE010351

PATIENT
  Sex: Female

DRUGS (6)
  1. ATORVASTATIN [Concomitant]
     Indication: DYSLIPIDAEMIA
     Dosage: 1 TAB C/ 24 HRS
     Route: 048
     Dates: start: 20080101
  2. ALISKIREN [Suspect]
     Dosage: UNK
     Route: 048
     Dates: start: 20110926, end: 20120101
  3. ASPIRIN [Concomitant]
     Indication: PROPHYLAXIS
     Dosage: 1 TAB C/24 HRS
     Route: 048
     Dates: start: 20080101
  4. BISOPROLOL FUMARATE [Concomitant]
     Indication: CARDIAC FAILURE CONGESTIVE
     Dosage: 1/2 TAB C/24
     Route: 048
     Dates: start: 20090101
  5. SPIRONOLACTONE [Concomitant]
     Indication: CARDIAC FAILURE CONGESTIVE
     Dosage: 1 TAB C/24
     Route: 048
     Dates: start: 20100101
  6. FUROSEMIDE [Concomitant]
     Indication: CARDIAC FAILURE CONGESTIVE
     Dosage: 1 TAB C/12
     Route: 048
     Dates: start: 20100101, end: 20120524

REACTIONS (2)
  - CARDIOGENIC SHOCK [None]
  - ACUTE PULMONARY OEDEMA [None]
